FAERS Safety Report 5236712-X (Version None)
Quarter: 2007Q1

REPORT INFORMATION
  Report Type: 
  Country: None (occurrence: None)
  Receive Date: 20070209
  Receipt Date: 20070126
  Transmission Date: 20070707
  Serious: Yes (Death, Life-Threatening, Other)
  Sender: FDA-Public Use
  Company Number: 070118-0000069

PATIENT
  Age: 6 Day
  Sex: Female

DRUGS (10)
  1. INDOMETHACIN SODIUM [Suspect]
     Indication: DRUG EXPOSURE DURING PREGNANCY
     Dosage: SEE IMAGE
     Route: 064
     Dates: start: 20020320
  2. INDOMETHACIN SODIUM [Suspect]
     Indication: PATENT DUCTUS ARTERIOSUS
     Dosage: SEE IMAGE
     Route: 064
     Dates: start: 20020320
  3. DICLOFENAC (DICLOFENAC) [Suspect]
     Indication: DRUG EXPOSURE DURING PREGNANCY
     Dosage: 50 MG, TRPL
     Route: 064
  4. AMIKACIN SULFATE [Concomitant]
  5. AMPICILLIN [Concomitant]
  6. CEFTAZIDIME [Concomitant]
  7. DOBUTAMINE HCL [Concomitant]
  8. DOPAMINE HCL [Concomitant]
  9. NEUPOGEN [Concomitant]
  10. VANCOMYCIN HYDROCHLORIDE [Concomitant]

REACTIONS (5)
  - DRUG EXPOSURE DURING PREGNANCY [None]
  - ILEAL PERFORATION [None]
  - NEONATAL DISORDER [None]
  - NEONATAL RESPIRATORY DISTRESS SYNDROME [None]
  - SHOCK [None]
